FAERS Safety Report 9852695 (Version 7)
Quarter: 2015Q3

REPORT INFORMATION
  Report Type: Spontaneous
  Country: US (occurrence: US)
  Receive Date: 20140129
  Receipt Date: 20150728
  Transmission Date: 20151125
  Serious: No
  Sender: FDA-Public Use
  Company Number: US-PFIZER INC-2014001195

PATIENT
  Age: 60 Year
  Sex: Male
  Weight: 138 kg

DRUGS (32)
  1. CAVERJECT [Suspect]
     Active Substance: ALPROSTADIL
     Dosage: 40 UG, AS DIRECTED PRIOR TO INTERCOURSE
     Dates: start: 201401
  2. LINZESS [Concomitant]
     Active Substance: LINACLOTIDE
     Indication: CONSTIPATION
  3. LOSARTAN. [Concomitant]
     Active Substance: LOSARTAN
     Dosage: 100 MG, 1X/DAY
  4. ACETAMINOPHEN. [Concomitant]
     Active Substance: ACETAMINOPHEN
     Indication: BACK PAIN
     Dosage: 500 MG, 2 TABLETS EVERY 6 HOURS
  5. TRIAMCINOLONE ACETONIDE. [Concomitant]
     Active Substance: TRIAMCINOLONE ACETONIDE
     Indication: URTICARIA
     Dosage: 0.5 %, AS NEEDED
  6. SULFACETAMIDE SODIUM. [Concomitant]
     Active Substance: SULFACETAMIDE SODIUM
     Indication: INFECTION
     Dosage: 10 %, 2 DROPS INTO BOTH EYES AND EARS
  7. CHLORTHALIDONE. [Concomitant]
     Active Substance: CHLORTHALIDONE
     Dosage: UNK
  8. CAVERJECT [Suspect]
     Active Substance: ALPROSTADIL
     Indication: ERECTILE DYSFUNCTION
     Dosage: 20 UG, 2X/WEEK
     Dates: start: 2013
  9. CAVERJECT [Suspect]
     Active Substance: ALPROSTADIL
     Dosage: 20 UG, WEEKLY
  10. CLARITIN [Concomitant]
     Active Substance: LORATADINE
     Indication: UPPER-AIRWAY COUGH SYNDROME
     Dosage: 10 MG, 2X/WEEK
  11. STOOL SOFTENER [Concomitant]
     Active Substance: DOCUSATE CALCIUM
     Dosage: 2 CAPSULES TWICE DAILY
  12. HYDROCORTISONE/LIDOCAINE [Concomitant]
     Indication: CONSTIPATION
     Dosage: 3%/0.5% TAKE 1 OR 2 DAILY
  13. CALCIUM CITRATE WITH VITAMIN D [Concomitant]
     Active Substance: CALCIUM CITRATE\VITAMIN D
     Dosage: UNK, 2X/DAY
  14. PRILOSEC [Concomitant]
     Active Substance: OMEPRAZOLE MAGNESIUM
     Indication: GASTROOESOPHAGEAL REFLUX DISEASE
     Dosage: 20 MG, 1 CAPSULE (TABLET) 2X/DAY
  15. FIBER [Concomitant]
     Active Substance: PSYLLIUM HUSK
     Indication: CONSTIPATION
     Dosage: 5 CAPSULES TWICE DAILY
  16. NIZORAL [Concomitant]
     Active Substance: KETOCONAZOLE
     Indication: DERMATITIS DIAPER
  17. CASODEX [Concomitant]
     Active Substance: BICALUTAMIDE
     Dosage: UNK
  18. CICLOPIROX. [Concomitant]
     Active Substance: CICLOPIROX
     Indication: FUNGAL INFECTION
     Dosage: UNK
  19. EPICERAM [Concomitant]
     Indication: ECZEMA
  20. LINZESS [Concomitant]
     Active Substance: LINACLOTIDE
     Indication: IRRITABLE BOWEL SYNDROME
     Dosage: 0.290 MG, 1X/DAY
  21. XOLAIR [Concomitant]
     Active Substance: OMALIZUMAB
     Indication: SARCOIDOSIS
     Dosage: 150 MG, EVERY 4 WEEKS
     Route: 058
     Dates: start: 19920206
  22. LUPRON [Concomitant]
     Active Substance: LEUPROLIDE ACETATE
     Indication: PROSTATE CANCER
     Dosage: UNK (EVERY 3 MONTH )
     Dates: start: 20140929
  23. CAVERJECT [Suspect]
     Active Substance: ALPROSTADIL
     Dosage: 20 UG, UNK
     Dates: start: 201401
  24. IPRATROPIUM [Concomitant]
     Active Substance: IPRATROPIUM
     Indication: UPPER-AIRWAY COUGH SYNDROME
     Dosage: 0.06 %, 2 PUFFS 4 TIMES A DAY
  25. XOLAIR [Concomitant]
     Active Substance: OMALIZUMAB
     Indication: ASTHMA
     Dosage: 300 MG, (EVERY 4 WEEKS )
     Dates: start: 20060629
  26. NIZORAL [Concomitant]
     Active Substance: KETOCONAZOLE
     Indication: FUNGAL INFECTION
     Dosage: 2 %, AS NEEDED
  27. NIZORAL [Concomitant]
     Active Substance: KETOCONAZOLE
     Indication: FUNGAL INFECTION
  28. TYLENOL [Concomitant]
     Active Substance: ACETAMINOPHEN
     Dosage: UNK, AS NEEDED
  29. LOSARTAN. [Concomitant]
     Active Substance: LOSARTAN
     Indication: HYPERTENSION
     Dosage: 50 MG, 1 TABLET 1X/DAY
  30. ASMANEX [Concomitant]
     Active Substance: MOMETASONE FUROATE
     Indication: ASTHMA
     Dosage: 200 UG, 1 PUFF TWICE DAILY
  31. LIDOCAINE. [Concomitant]
     Active Substance: LIDOCAINE
     Indication: CONSTIPATION
     Dosage: UNK
  32. HYDROCHLOROTHIAZIDE. [Concomitant]
     Active Substance: HYDROCHLOROTHIAZIDE
     Indication: HYPERTENSION
     Dosage: 25 MG, DAILY

REACTIONS (1)
  - Drug ineffective [Recovering/Resolving]

NARRATIVE: CASE EVENT DATE: 2013
